FAERS Safety Report 9476262 (Version 2)
Quarter: 2013Q3

REPORT INFORMATION
  Report Type: Spontaneous
  Country: JP (occurrence: None)
  Receive Date: 20130812
  Receipt Date: 20130829
  Transmission Date: 20140515
  Serious: Yes (Other)
  Sender: FDA-Public Use
  Company Number: 2013037324

PATIENT
  Age: 62 Year
  Sex: Male

DRUGS (1)
  1. KENKETU GLOVENIN-I (IMMUNE GLOBULIN INTRAVENOUS (HUMAN)) [Suspect]
     Indication: GUILLAIN-BARRE SYNDROME

REACTIONS (3)
  - Drug ineffective [None]
  - Off label use [None]
  - Sarcoidosis [None]
